FAERS Safety Report 25810936 (Version 1)
Quarter: 2025Q3

REPORT INFORMATION
  Report Type: Spontaneous
  Country: US (occurrence: US)
  Receive Date: 20250917
  Receipt Date: 20250917
  Transmission Date: 20251020
  Serious: No
  Sender: ROCHE
  Company Number: US-ROCHE-10000386254

PATIENT
  Age: 35 Year
  Sex: Female

DRUGS (2)
  1. VISMODEGIB [Suspect]
     Active Substance: VISMODEGIB
     Indication: Basal cell naevus syndrome
     Route: 065
  2. VISMODEGIB [Suspect]
     Active Substance: VISMODEGIB
     Indication: Basal cell carcinoma

REACTIONS (3)
  - Amenorrhoea [Recovered/Resolved]
  - Alopecia universalis [Recovered/Resolved]
  - Weight decreased [Recovered/Resolved]
